FAERS Safety Report 7003258-8 (Version None)
Quarter: 2010Q3

REPORT INFORMATION
  Report Type: 
  Country: None (occurrence: None)
  Receive Date: 20100916
  Receipt Date: 20100902
  Transmission Date: 20110219
  Serious: Yes (Other)
  Sender: FDA-Public Use
  Company Number: 2010S1000773

PATIENT
  Age: 60 Year
  Sex: Female

DRUGS (1)
  1. LIVALO [Suspect]
     Dosage: 2 MG; PO
     Route: 048
     Dates: start: 20100727, end: 20100801

REACTIONS (4)
  - DIZZINESS [None]
  - GASTROINTESTINAL DISORDER [None]
  - HYPERHIDROSIS [None]
  - NAUSEA [None]
